FAERS Safety Report 9521866 (Version 1)
Quarter: 2013Q1

REPORT INFORMATION
  Report Type: Spontaneous
  Country: US (occurrence: None)
  Receive Date: 20130305
  Receipt Date: 20130305
  Transmission Date: 20140127
  Serious: Yes (Other)
  Sender: FDA-Public Use
  Company Number: 163-21880-12070926

PATIENT
  Age: 78 Year
  Sex: Male

DRUGS (12)
  1. REVLIMID (LENALIDOMIDE) (CAPSULES) [Suspect]
     Indication: PLASMA CELL MYELOMA
     Route: 048
     Dates: start: 20120322
  2. DEXAMETHASONE(DEXAMETHASONE)(UNKNOWN) [Concomitant]
  3. PROCHLORPERAZINE(PROCHLORPERAZINE)(UNKNOWN) [Concomitant]
  4. LISINOPRIL(LISINOPRIL)(UNKNOWN) [Concomitant]
  5. VITAMIN B12(CYANOCOBALAMIN)(UNKNOWN) [Concomitant]
  6. GAS RELIEF(DIMETICONE, ACTIVATED)(UNKNOWN) [Concomitant]
  7. VITAMIN C(ASCORBIC ACID)(UNKNOWN) [Concomitant]
  8. ASPIRIN(ACETYLSALICYLIC ACID)(UNKNOWN) [Concomitant]
  9. CALCIUM(CALCIUM)(UNKNOWN) [Concomitant]
  10. GLUCOSAMINE W/CHONDROITIN(CHONDROITIN SODIUM SULFATE W/GLUCOSAMINE HCL)(UNKNOWN) [Concomitant]
  11. CULTURELLE(CULTURELLE)(UNKNOWN) [Concomitant]
  12. ACIDOPHILUS(UNKNOWN) [Suspect]

REACTIONS (1)
  - Full blood count decreased [None]
